FAERS Safety Report 23776970 (Version 3)
Quarter: 2024Q2

REPORT INFORMATION
  Report Type: Report from Study
  Country: CA (occurrence: CA)
  Receive Date: 20240424
  Receipt Date: 20240509
  Transmission Date: 20240716
  Serious: Yes (Other)
  Sender: FDA-Public Use
  Company Number: CA-ARGENX-2024-ARGX-CA001648

PATIENT

DRUGS (3)
  1. VYVGART [Suspect]
     Active Substance: EFGARTIGIMOD ALFA-FCAB
     Indication: Myasthenia gravis
     Dosage: 657 MG, 10MG/KG
     Route: 042
     Dates: start: 20231121
  2. CORTICOSTEROID NOS [Concomitant]
     Active Substance: CORTICOSTEROID NOS
     Indication: Product used for unknown indication
     Dosage: UNK
     Route: 065
  3. CORTICOSTEROID NOS [Concomitant]
     Active Substance: CORTICOSTEROID NOS
     Dosage: DOSE REDUCED
     Route: 065

REACTIONS (7)
  - Myasthenia gravis [Unknown]
  - Fall [Unknown]
  - Poor venous access [Unknown]
  - Arthralgia [Unknown]
  - Back pain [Unknown]
  - Fatigue [Recovered/Resolved]
  - Procedural headache [Recovered/Resolved]

NARRATIVE: CASE EVENT DATE: 20240301
